FAERS Safety Report 9203744 (Version 1)
Quarter: 2013Q2

REPORT INFORMATION
  Report Type: Spontaneous
  Country: BR (occurrence: BR)
  Receive Date: 20130402
  Receipt Date: 20130402
  Transmission Date: 20140414
  Serious: Yes (Hospitalization, Other)
  Sender: FDA-Public Use
  Company Number: BR-AMGEN-BRASP2012004197

PATIENT
  Age: 50 Year
  Sex: Female
  Weight: 52 kg

DRUGS (3)
  1. ENBREL [Suspect]
     Indication: RHEUMATOID ARTHRITIS
     Dosage: 50 MG, ONCE A WEEK
     Route: 058
     Dates: start: 2008, end: 201102
  2. ARAVA [Concomitant]
     Dosage: UNK
     Dates: start: 2005
  3. PREDNISONE [Concomitant]
     Dosage: UNK
     Dates: start: 2005

REACTIONS (3)
  - Joint lock [Unknown]
  - Chondropathy [Unknown]
  - Arthritis bacterial [Unknown]
